FAERS Safety Report 10586288 (Version 2)
Quarter: 2015Q2

REPORT INFORMATION
  Report Type: Report from Study
  Country: JP (occurrence: JP)
  Receive Date: 20141117
  Receipt Date: 20150402
  Transmission Date: 20150821
  Serious: Yes (Other)
  Sender: FDA-Public Use
  Company Number: JP-ROCHE-1487522

PATIENT
  Age: 77 Year
  Sex: Female
  Weight: 51 kg

DRUGS (13)
  1. LOXONIN [Concomitant]
     Active Substance: LOXOPROFEN SODIUM
     Dosage: 60 MG, AS REQUIRED
     Route: 048
     Dates: start: 20140616
  2. CRAVIT [Concomitant]
     Active Substance: LEVOFLOXACIN
     Dosage: 1 DOSE
     Route: 048
     Dates: start: 20140908, end: 20141124
  3. RIBAVIRIN. [Suspect]
     Active Substance: RIBAVIRIN
     Route: 048
     Dates: start: 20140625, end: 20141124
  4. SIMEPREVIR [Suspect]
     Active Substance: SIMEPREVIR
     Indication: CHRONIC HEPATITIS C
     Route: 048
     Dates: start: 20140616, end: 20140908
  5. TEPRENONE [Concomitant]
     Active Substance: TEPRENONE
     Route: 065
     Dates: end: 20141124
  6. SELBEX [Concomitant]
     Active Substance: TEPRENONE
     Dosage: 3 DOSE
     Route: 048
     Dates: start: 20140630
  7. DIPHENHYDRAMINE [Concomitant]
     Active Substance: DIPHENHYDRAMINE
     Route: 065
     Dates: end: 20141124
  8. RIBAVIRIN. [Suspect]
     Active Substance: RIBAVIRIN
     Indication: CHRONIC HEPATITIS C
     Route: 048
     Dates: start: 20140616
  9. LENDORMIN D [Concomitant]
     Active Substance: BROTIZOLAM
     Indication: INSOMNIA
     Dosage: 1 DOSE
     Route: 048
     Dates: start: 20140714
  10. ALPRAZOLAM. [Concomitant]
     Active Substance: ALPRAZOLAM
     Route: 065
     Dates: end: 20141006
  11. PEG-INTERFERON ALFA 2A [Suspect]
     Active Substance: PEGINTERFERON ALFA-2A
     Indication: CHRONIC HEPATITIS C
     Route: 058
     Dates: start: 20140616
  12. PEG-INTERFERON ALFA 2A [Suspect]
     Active Substance: PEGINTERFERON ALFA-2A
     Route: 058
     Dates: start: 20140707, end: 20141125
  13. CRAVIT [Concomitant]
     Active Substance: LEVOFLOXACIN
     Indication: CYSTITIS
     Dosage: 1 DOSE
     Route: 048
     Dates: start: 20140627

REACTIONS (5)
  - Cystitis [Recovered/Resolved]
  - White blood cell count decreased [Recovered/Resolved]
  - Haemoglobin decreased [Recovered/Resolved]
  - Platelet count decreased [Recovered/Resolved]
  - Injection site eczema [Recovered/Resolved]

NARRATIVE: CASE EVENT DATE: 20140623
